FAERS Safety Report 21305814 (Version 2)
Quarter: 2022Q4

REPORT INFORMATION
  Report Type: Report from Study
  Country: RU (occurrence: RU)
  Receive Date: 20220908
  Receipt Date: 20221206
  Transmission Date: 20230113
  Serious: Yes (Other)
  Sender: FDA-Public Use
  Company Number: RU-NOVARTISPH-NVSC2022RU201449

PATIENT
  Age: 58 Year

DRUGS (1)
  1. ANASTROZOLE [Suspect]
     Active Substance: ANASTROZOLE
     Indication: Product used for unknown indication
     Dosage: UNK (3.5 YEARS)
     Route: 065

REACTIONS (2)
  - Lymphadenopathy [Unknown]
  - Focal nodular hyperplasia [Unknown]

NARRATIVE: CASE EVENT DATE: 20171001
